FAERS Safety Report 4936805-8 (Version None)
Quarter: 2006Q1

REPORT INFORMATION
  Report Type: 
  Country: None (occurrence: None)
  Receive Date: 20060307
  Receipt Date: 20050602
  Transmission Date: 20060701
  Serious: Yes (Hospitalization)
  Sender: FDA-Public Use
  Company Number: US-MERCK-0506USA00736

PATIENT
  Age: 67 Year
  Sex: Female
  Weight: 79 kg

DRUGS (2)
  1. VIOXX [Suspect]
     Indication: ARTHRALGIA
     Route: 048
     Dates: start: 20010914, end: 20011201
  2. VIOXX [Suspect]
     Route: 048
     Dates: start: 20020401, end: 20030601

REACTIONS (20)
  - ANGINA UNSTABLE [None]
  - BACK PAIN [None]
  - CAROTID ARTERY DISEASE [None]
  - CEREBROVASCULAR ACCIDENT [None]
  - CHEST DISCOMFORT [None]
  - CHEST PAIN [None]
  - CONTUSION [None]
  - DIZZINESS [None]
  - EAR CANAL INJURY [None]
  - EMBOLISM [None]
  - FALL [None]
  - FATIGUE [None]
  - HYPERTENSION [None]
  - INFARCTION [None]
  - PARAESTHESIA [None]
  - PHARYNGEAL HAEMORRHAGE [None]
  - ROTATOR CUFF SYNDROME [None]
  - THROMBOSIS [None]
  - TREMOR [None]
  - VAGINAL HAEMORRHAGE [None]
